FAERS Safety Report 14309054 (Version 1)
Quarter: 2017Q4

REPORT INFORMATION
  Report Type: Spontaneous
  Country: US (occurrence: US)
  Receive Date: 20171219
  Receipt Date: 20171219
  Transmission Date: 20180321
  Serious: No
  Sender: FDA-Public Use
  Company Number: None

PATIENT
  Age: 67 Year
  Sex: Male
  Weight: 70.5 kg

DRUGS (1)
  1. CEFTRIAXONE. [Suspect]
     Active Substance: CEFTRIAXONE
     Indication: SURGERY
     Route: 042
     Dates: start: 20151229, end: 20151230

REACTIONS (2)
  - Angioedema [None]
  - Eye pruritus [None]

NARRATIVE: CASE EVENT DATE: 20151230
